FAERS Safety Report 7462811-8 (Version None)
Quarter: 2011Q2

REPORT INFORMATION
  Report Type: 
  Country: None (occurrence: None)
  Receive Date: 20110506
  Receipt Date: 20110415
  Transmission Date: 20111010
  Serious: Yes (Life-Threatening, Hospitalization, Other)
  Sender: FDA-Public Use
  Company Number: US-JNJFOC-20110405769

PATIENT
  Age: 11 Year
  Sex: Female

DRUGS (8)
  1. ULTRAM [Suspect]
     Indication: PRODUCT USED FOR UNKNOWN INDICATION
     Route: 065
  2. LEXAPRO [Concomitant]
     Indication: PRODUCT USED FOR UNKNOWN INDICATION
     Route: 065
  3. ABILIFY [Concomitant]
     Indication: PRODUCT USED FOR UNKNOWN INDICATION
     Route: 065
  4. PARACETAMOL [Concomitant]
     Route: 065
  5. MONTELUKAST SODIUM [Concomitant]
     Route: 065
  6. CELEXA [Suspect]
     Indication: DEPRESSION
     Route: 065
  7. OMEPRAZOLE [Concomitant]
     Route: 065
  8. IBUPROFEN [Concomitant]
     Route: 065

REACTIONS (6)
  - INTRACRANIAL VENOUS SINUS THROMBOSIS [None]
  - CARDIO-RESPIRATORY ARREST [None]
  - INTENTIONAL OVERDOSE [None]
  - CEREBELLAR INFARCTION [None]
  - SUICIDE ATTEMPT [None]
  - UNRESPONSIVE TO STIMULI [None]
